FAERS Safety Report 9024555 (Version 2)
Quarter: 2013Q1

REPORT INFORMATION
  Report Type: Spontaneous
  Country: US (occurrence: None)
  Receive Date: 20130104
  Receipt Date: 20130215
  Transmission Date: 20140127
  Serious: Yes (Death)
  Sender: FDA-Public Use
  Company Number: 2012120102

PATIENT
  Age: 61 Year
  Sex: Female
  Weight: 125.65 kg

DRUGS (4)
  1. SOMA [Suspect]
     Indication: BACK PAIN
     Dosage: 1050 MG (350 MG, 3 IN 1 D),ORAL
     Route: 048
  2. XANAX [Suspect]
     Indication: ANXIETY
     Dosage: 3 MG (1 MG,3 IN 1 D),ORAL
     Route: 048
     Dates: start: 1986
  3. OXYCODONE/ACETAMINOPHEN [Suspect]
     Indication: BACK PAIN
     Route: 048
  4. OXYCONTIN (OXYCODONE) [Concomitant]

REACTIONS (1)
  - Death [None]
